FAERS Safety Report 24583173 (Version 2)
Quarter: 2024Q4

REPORT INFORMATION
  Report Type: Spontaneous
  Country: US (occurrence: US)
  Receive Date: 20241106
  Receipt Date: 20241121
  Transmission Date: 20250115
  Serious: Yes (Other)
  Sender: ABBVIE
  Company Number: US-ABBVIE-5985381

PATIENT
  Age: 69 Year
  Sex: Female

DRUGS (3)
  1. TIMOLOL [Suspect]
     Active Substance: TIMOLOL\TIMOLOL MALEATE
     Indication: Intraocular pressure test abnormal
     Route: 047
     Dates: start: 2024
  2. TIMOLOL [Suspect]
     Active Substance: TIMOLOL\TIMOLOL MALEATE
     Indication: Glaucoma
  3. TIMOLOL MALEATE [Concomitant]
     Active Substance: TIMOLOL MALEATE
     Indication: Glaucoma

REACTIONS (2)
  - Surgery [Unknown]
  - Glaucoma [Unknown]

NARRATIVE: CASE EVENT DATE: 20240101
